FAERS Safety Report 5135616-0 (Version None)
Quarter: 2006Q4

REPORT INFORMATION
  Report Type: 
  Country: None (occurrence: None)
  Receive Date: 20061026
  Receipt Date: 20061012
  Transmission Date: 20070319
  Serious: Yes (Other)
  Sender: FDA-Public Use
  Company Number: PHRM2006FR02836

PATIENT
  Age: 75 Year
  Sex: Male

DRUGS (2)
  1. GLEEVEC [Suspect]
     Indication: CHRONIC MYELOID LEUKAEMIA
     Route: 048
  2. RADIOTHERAPY [Suspect]
     Indication: PROSTATE CANCER

REACTIONS (6)
  - ANAL FISTULA [None]
  - ARTIFICIAL ANUS [None]
  - BLADDER FISTULA REPAIR [None]
  - PROSTATE CANCER [None]
  - RADIATION INJURY [None]
  - VESICAL FISTULA [None]
